FAERS Safety Report 20868333 (Version 2)
Quarter: 2022Q2

REPORT INFORMATION
  Report Type: Spontaneous
  Country: US (occurrence: US)
  Receive Date: 20220524
  Receipt Date: 20220526
  Transmission Date: 20220721
  Serious: Yes (Other)
  Sender: FDA-Public Use
  Company Number: US-PFIZER INC-202200735682

PATIENT

DRUGS (1)
  1. LYRICA [Suspect]
     Active Substance: PREGABALIN
     Dosage: UNK (OVER 10 YEARS)

REACTIONS (4)
  - Spinal cord disorder [Unknown]
  - Joint injury [Unknown]
  - Limb injury [Unknown]
  - Neuralgia [Unknown]
